FAERS Safety Report 5512970-9 (Version None)
Quarter: 2007Q4

REPORT INFORMATION
  Report Type: 
  Country: None (occurrence: None)
  Receive Date: 20071112
  Receipt Date: 20071105
  Transmission Date: 20080405
  Serious: Yes (Other)
  Sender: FDA-Public Use
  Company Number: NL-AMGEN-US251551

PATIENT
  Age: 11 Year
  Sex: Female

DRUGS (4)
  1. ENBREL [Suspect]
     Indication: DRUG USE FOR UNKNOWN INDICATION
     Dosage: UNK
     Dates: start: 20071001, end: 20071001
  2. PREDNISONE [Concomitant]
     Dosage: 30 MG
     Dates: end: 20071001
  3. PREDNISONE [Concomitant]
     Dosage: 12.5 MG
     Dates: start: 20071001, end: 20071001
  4. PREDNISONE [Concomitant]
     Dosage: } 12.5 MG
     Dates: start: 20071001

REACTIONS (2)
  - C-REACTIVE PROTEIN INCREASED [None]
  - DRUG EFFECT DECREASED [None]
